FAERS Safety Report 7678199 (Version 3)
Quarter: 2013Q3

REPORT INFORMATION
  Report Type: Spontaneous
  Country: US (occurrence: US)
  Receive Date: 20101122
  Receipt Date: 20130828
  Transmission Date: 20140515
  Serious: Yes (Other)
  Sender: FDA-Public Use
  Company Number: US-JNJFOC-20101002954

PATIENT
  Age: 28 Year
  Sex: Male
  Weight: 75.3 kg

DRUGS (12)
  1. REMICADE [Suspect]
     Indication: CROHN^S DISEASE
     Route: 042
     Dates: start: 20101001
  2. REMICADE [Suspect]
     Indication: CROHN^S DISEASE
     Route: 042
     Dates: start: 20101014
  3. REMICADE [Suspect]
     Indication: CROHN^S DISEASE
     Route: 042
  4. REMICADE [Suspect]
     Indication: CROHN^S DISEASE
     Dosage: WAS ON 5MG/KG REMICADE FOR ONE YEAR AND STOPPED IN JAN-2010. RESTARTED 10MG/KG ON 01-OCT-2010.
     Route: 042
     Dates: start: 20091214
  5. REMICADE [Suspect]
     Indication: CROHN^S DISEASE
     Route: 042
     Dates: start: 201003
  6. BENADRYL [Concomitant]
     Indication: PREMEDICATION
     Route: 048
     Dates: start: 20091208
  7. TYLENOL [Concomitant]
     Indication: PREMEDICATION
     Route: 065
  8. ACETAMINOPHEN [Concomitant]
     Indication: PREMEDICATION
     Route: 048
     Dates: start: 20091208
  9. LIALDA [Concomitant]
     Indication: COLITIS ULCERATIVE
     Route: 065
     Dates: start: 20100930
  10. VITAMIN D [Concomitant]
     Indication: VITAMIN D DEFICIENCY
     Route: 065
     Dates: start: 20090519
  11. PREDNISONE [Concomitant]
     Indication: PREMEDICATION
     Route: 048
  12. HYDROCORTISONE [Concomitant]
     Indication: PREMEDICATION
     Route: 042
     Dates: start: 20091208

REACTIONS (6)
  - Throat irritation [Recovered/Resolved]
  - Vomiting [Recovered/Resolved]
  - Rash pruritic [Recovered/Resolved]
  - Drug ineffective [Unknown]
  - Infusion related reaction [Recovered/Resolved]
  - Urticaria [Recovered/Resolved]
